FAERS Safety Report 12922644 (Version 2)
Quarter: 2017Q1

REPORT INFORMATION
  Report Type: Report from Study
  Country: JP (occurrence: JP)
  Receive Date: 20161109
  Receipt Date: 20170322
  Transmission Date: 20170428
  Serious: Yes (Other)
  Sender: FDA-Public Use
  Company Number: JP-AMGEN-JPNNI2016157425

PATIENT
  Age: 64 Year
  Sex: Male
  Weight: 57 kg

DRUGS (77)
  1. PEGFILGRASTIM [Suspect]
     Active Substance: PEGFILGRASTIM
     Dosage: 3.6 MG, UNK
     Route: 058
     Dates: start: 20160521, end: 20160521
  2. METHOTREXATE. [Concomitant]
     Active Substance: METHOTREXATE
     Dosage: 15 MG, UNK
     Route: 065
     Dates: start: 20160415, end: 20160415
  3. METHOTREXATE. [Concomitant]
     Active Substance: METHOTREXATE
     Dosage: 15 MG, UNK
     Route: 065
     Dates: start: 20160513, end: 20160513
  4. CYLOCIDE [Concomitant]
     Active Substance: CYTARABINE
     Dosage: 40 MG, UNK
     Route: 065
     Dates: start: 20160708, end: 20160708
  5. ETOPOSIDE. [Concomitant]
     Active Substance: ETOPOSIDE
     Dosage: 88 MG, UNK
     Route: 041
     Dates: start: 20160418, end: 20160421
  6. ONCOVIN [Concomitant]
     Active Substance: VINCRISTINE SULFATE
     Dosage: 0.6 MG, UNK
     Route: 042
     Dates: start: 20160711, end: 20160714
  7. ENDOXAN                            /00021101/ [Concomitant]
     Active Substance: CYCLOPHOSPHAMIDE
     Dosage: 1200 MG, UNK
     Route: 042
     Dates: start: 20160617, end: 20160617
  8. CEFEPIME [Concomitant]
     Active Substance: CEFEPIME HYDROCHLORIDE
     Indication: FEBRILE NEUTROPENIA
     Dosage: UNK
     Route: 042
  9. ALPINY [Concomitant]
     Active Substance: ACETAMINOPHEN
     Dosage: UNK
     Route: 054
  10. PEGFILGRASTIM [Suspect]
     Active Substance: PEGFILGRASTIM
     Indication: COLONY STIMULATING FACTOR PROPHYLAXIS
     Dosage: 3.6 MG, UNK
     Route: 058
     Dates: start: 20160423, end: 20160423
  11. RITUXAN [Concomitant]
     Active Substance: RITUXIMAB
     Dosage: 650 MG, UNK
     Route: 041
     Dates: start: 20160415, end: 20160415
  12. METHOTREXATE. [Concomitant]
     Active Substance: METHOTREXATE
     Dosage: 15 MG, UNK
     Route: 065
     Dates: start: 20160610, end: 20160610
  13. METHOTREXATE. [Concomitant]
     Active Substance: METHOTREXATE
     Dosage: 15 MG, UNK
     Route: 065
     Dates: start: 20160805, end: 20160805
  14. PREDONINE [Concomitant]
     Active Substance: PREDNISOLONE
     Dosage: 20 MG, UNK
     Route: 065
     Dates: start: 20160610, end: 20160610
  15. DOXORUBICIN HYDROCHLORIDE. [Concomitant]
     Active Substance: DOXORUBICIN HYDROCHLORIDE
     Indication: NON-HODGKIN^S LYMPHOMA
     Dosage: UNK
     Route: 042
  16. ONCOVIN [Concomitant]
     Active Substance: VINCRISTINE SULFATE
     Dosage: 0.7 MG, UNK
     Route: 042
     Dates: start: 20160418, end: 20160421
  17. ONCOVIN [Concomitant]
     Active Substance: VINCRISTINE SULFATE
     Dosage: 0.6 MG, UNK
     Route: 042
     Dates: start: 20160613, end: 20160616
  18. SOLITA-T3 [Concomitant]
     Active Substance: POTASSIUM CHLORIDE\SODIUM CHLORIDE\SODIUM LACTATE
     Dosage: UNK
     Route: 041
  19. BFLUID [Concomitant]
     Active Substance: AMINO ACIDS\DEXTROSE\ELECTROLYTES NOS\VITAMINS
     Dosage: UNK
     Route: 041
  20. MEROPENEM. [Concomitant]
     Active Substance: MEROPENEM
     Indication: FEBRILE NEUTROPENIA
     Dosage: UNK
     Route: 041
  21. XYLOCAINE [Concomitant]
     Active Substance: LIDOCAINE HYDROCHLORIDE
     Indication: ORAL DISORDER
     Dosage: UNK
     Route: 049
  22. BROTIZOLAM [Concomitant]
     Active Substance: BROTIZOLAM
     Dosage: UNK
     Route: 048
  23. NESINA [Concomitant]
     Active Substance: ALOGLIPTIN BENZOATE
     Indication: DIABETES MELLITUS
     Dosage: UNK
     Route: 048
  24. RITUXAN [Concomitant]
     Active Substance: RITUXIMAB
     Indication: NON-HODGKIN^S LYMPHOMA
     Dosage: UNK
     Route: 041
  25. RITUXAN [Concomitant]
     Active Substance: RITUXIMAB
     Dosage: 660 MG, UNK
     Route: 041
     Dates: start: 20160513, end: 20160513
  26. RITUXAN [Concomitant]
     Active Substance: RITUXIMAB
     Dosage: 600 MG, UNK
     Route: 041
     Dates: start: 20160610, end: 20160610
  27. RITUXAN [Concomitant]
     Active Substance: RITUXIMAB
     Dosage: 600 MG, UNK
     Route: 041
     Dates: start: 20160708, end: 20160708
  28. METHOTREXATE. [Concomitant]
     Active Substance: METHOTREXATE
     Indication: NON-HODGKIN^S LYMPHOMA
     Dosage: UNK
     Route: 065
  29. CYLOCIDE [Concomitant]
     Active Substance: CYTARABINE
     Indication: NON-HODGKIN^S LYMPHOMA
     Dosage: UNK
     Route: 065
  30. ETOPOSIDE. [Concomitant]
     Active Substance: ETOPOSIDE
     Dosage: 80 MG, UNK
     Route: 041
     Dates: start: 20160613, end: 20160616
  31. DOXORUBICIN HYDROCHLORIDE. [Concomitant]
     Active Substance: DOXORUBICIN HYDROCHLORIDE
     Dosage: 17.5 MG, UNK
     Route: 042
     Dates: start: 20160418, end: 20160421
  32. DOXORUBICIN HYDROCHLORIDE. [Concomitant]
     Active Substance: DOXORUBICIN HYDROCHLORIDE
     Dosage: 20 MG, UNK
     Route: 042
     Dates: start: 20160808, end: 20160811
  33. GRANISETRON [Concomitant]
     Active Substance: GRANISETRON
     Dosage: UNK
     Route: 041
  34. LEVOFLOXACIN HEMIHYDRATE [Concomitant]
     Active Substance: LEVOFLOXACIN
     Dosage: UNK
     Route: 048
  35. ADEFURONIC [Concomitant]
     Active Substance: DICLOFENAC SODIUM
     Dosage: UNK
     Route: 048
  36. PREDONINE [Concomitant]
     Active Substance: PREDNISOLONE
     Dosage: 20 MG, UNK
     Route: 065
     Dates: start: 20160415, end: 20160415
  37. ETOPOSIDE. [Concomitant]
     Active Substance: ETOPOSIDE
     Dosage: 88 MG, UNK
     Route: 041
     Dates: start: 20160516, end: 20160519
  38. DOXORUBICIN HYDROCHLORIDE. [Concomitant]
     Active Substance: DOXORUBICIN HYDROCHLORIDE
     Dosage: 17.5 MG, UNK
     Route: 042
     Dates: start: 20160516, end: 20160519
  39. ENDOXAN                            /00021101/ [Concomitant]
     Active Substance: CYCLOPHOSPHAMIDE
     Dosage: 1320 MG, UNK
     Route: 042
     Dates: start: 20160520, end: 20160520
  40. ENDOXAN                            /00021101/ [Concomitant]
     Active Substance: CYCLOPHOSPHAMIDE
     Dosage: 1500 MG, UNK
     Route: 042
     Dates: start: 20160812, end: 20160812
  41. ISOTONIC SODIUM CHLORIDE SOLUTION [Concomitant]
     Active Substance: SODIUM CHLORIDE
     Dosage: UNK
     Route: 042
  42. GLUCOSE [Concomitant]
     Active Substance: DEXTROSE
     Dosage: UNK
     Route: 042
  43. SOLU-CORTEF [Concomitant]
     Active Substance: HYDROCORTISONE SODIUM SUCCINATE
     Indication: FEBRILE NEUTROPENIA
     Dosage: UNK
     Route: 065
  44. CYLOCIDE [Concomitant]
     Active Substance: CYTARABINE
     Dosage: 40 MG, UNK
     Route: 065
     Dates: start: 20160610, end: 20160610
  45. PREDONINE [Concomitant]
     Active Substance: PREDNISOLONE
     Dosage: 20 MG, UNK
     Route: 065
     Dates: start: 20160805, end: 20160805
  46. ETOPOSIDE. [Concomitant]
     Active Substance: ETOPOSIDE
     Indication: NON-HODGKIN^S LYMPHOMA
     Dosage: UNK
     Route: 041
  47. ONCOVIN [Concomitant]
     Active Substance: VINCRISTINE SULFATE
     Dosage: 0.7 MG, UNK
     Route: 042
     Dates: start: 20160516, end: 20160519
  48. FUROSEMIDE. [Concomitant]
     Active Substance: FUROSEMIDE
     Dosage: UNK
     Route: 065
  49. PEGFILGRASTIM [Suspect]
     Active Substance: PEGFILGRASTIM
     Dosage: 3.6 MG, UNK
     Route: 058
     Dates: start: 20160716, end: 20160716
  50. RITUXAN [Concomitant]
     Active Substance: RITUXIMAB
     Dosage: 600 MG, UNK
     Route: 041
     Dates: start: 20160805, end: 20160805
  51. CYLOCIDE [Concomitant]
     Active Substance: CYTARABINE
     Dosage: 40 MG, UNK
     Route: 065
     Dates: start: 20160513, end: 20160513
  52. CYLOCIDE [Concomitant]
     Active Substance: CYTARABINE
     Dosage: 40 MG, UNK
     Route: 065
     Dates: start: 20160805, end: 20160805
  53. PREDONINE [Concomitant]
     Active Substance: PREDNISOLONE
     Indication: NON-HODGKIN^S LYMPHOMA
     Dosage: UNK
     Route: 065
  54. ETOPOSIDE. [Concomitant]
     Active Substance: ETOPOSIDE
     Dosage: 80 MG, UNK
     Route: 041
     Dates: start: 20160711, end: 20160714
  55. ETOPOSIDE. [Concomitant]
     Active Substance: ETOPOSIDE
     Dosage: 100 MG, UNK
     Route: 041
     Dates: start: 20160808, end: 20160811
  56. DOXORUBICIN HYDROCHLORIDE. [Concomitant]
     Active Substance: DOXORUBICIN HYDROCHLORIDE
     Dosage: 16 MG, UNK
     Route: 042
     Dates: start: 20160613, end: 20160616
  57. DOXORUBICIN HYDROCHLORIDE. [Concomitant]
     Active Substance: DOXORUBICIN HYDROCHLORIDE
     Dosage: 16 MG, UNK
     Route: 042
     Dates: start: 20160711, end: 20160714
  58. ONCOVIN [Concomitant]
     Active Substance: VINCRISTINE SULFATE
     Dosage: 0.66 MG, UNK
     Route: 042
     Dates: start: 20160808, end: 20160811
  59. ENDOXAN                            /00021101/ [Concomitant]
     Active Substance: CYCLOPHOSPHAMIDE
     Indication: NON-HODGKIN^S LYMPHOMA
     Dosage: UNK
     Route: 042
  60. ENDOXAN                            /00021101/ [Concomitant]
     Active Substance: CYCLOPHOSPHAMIDE
     Dosage: 1320 MG, UNK
     Route: 042
     Dates: start: 20160422, end: 20160422
  61. AZ                                 /00317303/ [Concomitant]
     Indication: ORAL DISORDER
     Dosage: UNK
     Route: 049
  62. CALONAL [Concomitant]
     Active Substance: ACETAMINOPHEN
     Indication: ORAL DISORDER
     Dosage: UNK
     Route: 048
  63. DAIPHEN [Concomitant]
     Active Substance: SULFAMETHOXAZOLE\TRIMETHOPRIM
     Dosage: UNK
     Route: 048
  64. PEGFILGRASTIM [Suspect]
     Active Substance: PEGFILGRASTIM
     Dosage: 3.6 MG, UNK
     Route: 058
     Dates: start: 20160813, end: 20160813
  65. CYLOCIDE [Concomitant]
     Active Substance: CYTARABINE
     Dosage: 40 MG, UNK
     Route: 065
     Dates: start: 20160415, end: 20160415
  66. PREDONINE [Concomitant]
     Active Substance: PREDNISOLONE
     Dosage: 20 MG, UNK
     Route: 065
     Dates: start: 20160708, end: 20160708
  67. ONCOVIN [Concomitant]
     Active Substance: VINCRISTINE SULFATE
     Indication: NON-HODGKIN^S LYMPHOMA
     Dosage: UNK
     Route: 042
  68. PROTECADIN [Concomitant]
     Active Substance: LAFUTIDINE
     Dosage: UNK
     Route: 048
  69. MEQUITAZINE [Concomitant]
     Active Substance: MEQUITAZINE
     Indication: NON-HODGKIN^S LYMPHOMA
     Dosage: UNK, CYCLE 1-5
     Route: 048
  70. SENNOSIDE                          /00571901/ [Concomitant]
     Active Substance: SENNOSIDES A AND B
     Indication: CONSTIPATION
     Dosage: UNK
     Route: 048
  71. PEGFILGRASTIM [Suspect]
     Active Substance: PEGFILGRASTIM
     Dosage: 3.6 MG, UNK
     Route: 058
     Dates: start: 20160618, end: 20160618
  72. METHOTREXATE. [Concomitant]
     Active Substance: METHOTREXATE
     Dosage: 15 MG, UNK
     Route: 065
     Dates: start: 20160708, end: 20160708
  73. PREDONINE [Concomitant]
     Active Substance: PREDNISOLONE
     Dosage: 20 MG, UNK
     Route: 065
     Dates: start: 20160513, end: 20160513
  74. ENDOXAN                            /00021101/ [Concomitant]
     Active Substance: CYCLOPHOSPHAMIDE
     Dosage: 1200 MG, UNK
     Route: 042
     Dates: start: 20160715, end: 20160715
  75. SOLITA-T 3G [Concomitant]
     Dosage: UNK
     Route: 041
  76. GLYCERIN                           /00200601/ [Concomitant]
     Active Substance: GLYCERIN
     Indication: ORAL DISORDER
     Dosage: UNK
     Route: 049
  77. FLUCONAZOLE. [Concomitant]
     Active Substance: FLUCONAZOLE
     Dosage: UNK
     Route: 048

REACTIONS (5)
  - Febrile neutropenia [Recovered/Resolved]
  - Febrile neutropenia [Recovered/Resolved]
  - Febrile neutropenia [Recovered/Resolved]
  - Febrile neutropenia [Recovered/Resolved]
  - Febrile neutropenia [Recovered/Resolved]

NARRATIVE: CASE EVENT DATE: 20160427
